FAERS Safety Report 4407584-8 (Version None)
Quarter: 2004Q3

REPORT INFORMATION
  Report Type: 
  Country: None (occurrence: None)
  Receive Date: 20040721
  Receipt Date: 20040706
  Transmission Date: 20050211
  Serious: Yes (Life-Threatening, Hospitalization)
  Sender: FDA-Public Use
  Company Number: DE-SHR-03-018742

PATIENT
  Age: 52 Year
  Sex: Female
  Weight: 58 kg

DRUGS (2)
  1. BETAFERON (INTERFERON  BETA - 1B) INJECTION, 250UG [Suspect]
     Indication: MULTIPLE SCLEROSIS
     Dosage: 1 ML, EVERY 2D, SUBCUTANEOUS
     Route: 058
     Dates: start: 20010301, end: 20031209
  2. LEVOTHYROXINE SODIUM [Concomitant]

REACTIONS (27)
  - AORTIC VALVE INCOMPETENCE [None]
  - ATRIAL FLUTTER [None]
  - AUTOIMMUNE DISORDER [None]
  - BRAIN NATRIURETIC PEPTIDE DECREASED [None]
  - BUNDLE BRANCH BLOCK LEFT [None]
  - CARDIAC FAILURE [None]
  - CARDIOMEGALY [None]
  - CARDIOMYOPATHY ACUTE [None]
  - CONGESTIVE CARDIOMYOPATHY [None]
  - CYANOSIS [None]
  - DILATATION VENTRICULAR [None]
  - ELECTROCARDIOGRAM PQ INTERVAL PROLONGED [None]
  - ELECTROCARDIOGRAM QRS COMPLEX PROLONGED [None]
  - FIBROSIS [None]
  - GENERAL PHYSICAL HEALTH DETERIORATION [None]
  - HEPATIC ENZYME INCREASED [None]
  - INFLUENZA [None]
  - LEFT VENTRICULAR FAILURE [None]
  - MITRAL VALVE INCOMPETENCE [None]
  - MYOCARDITIS [None]
  - NASOPHARYNGITIS [None]
  - PLEURAL EFFUSION [None]
  - RESPIRATORY RATE INCREASED [None]
  - SUPRAVENTRICULAR EXTRASYSTOLES [None]
  - TRANSAMINASES INCREASED [None]
  - VENTRICULAR EXTRASYSTOLES [None]
  - VENTRICULAR HYPERTROPHY [None]
